FAERS Safety Report 9002533 (Version 2)
Quarter: 2013Q1

REPORT INFORMATION
  Report Type: Spontaneous
  Country: IT (occurrence: IT)
  Receive Date: 20130107
  Receipt Date: 20130125
  Transmission Date: 20140127
  Serious: Yes (Hospitalization)
  Sender: FDA-Public Use
  Company Number: IT-SANOFI-AVENTIS-2013SA000409

PATIENT
  Age: 75 Year
  Sex: Female

DRUGS (2)
  1. ARAVA [Suspect]
     Indication: CONNECTIVE TISSUE DISORDER
     Route: 048
     Dates: start: 20120729, end: 20120829
  2. LASIX [Suspect]
     Indication: HYPERTENSION
     Route: 048
     Dates: start: 20090101, end: 20120829

REACTIONS (2)
  - Renal failure [Recovered/Resolved]
  - Anaemia [Recovered/Resolved]
